FAERS Safety Report 8816252 (Version 1)
Quarter: 2012Q4

REPORT INFORMATION
  Report Type: Report from Study
  Country: JP (occurrence: JP)
  Receive Date: 20120930
  Receipt Date: 20120930
  Transmission Date: 20130627
  Serious: Yes (Hospitalization)
  Sender: FDA-Public Use
  Company Number: JP-009507513-1209JPN011651

PATIENT
  Age: 62 Year
  Sex: Male
  Weight: 96 kg

DRUGS (12)
  1. PEGINTRON [Suspect]
     Indication: HEPATITIS C
     Dosage: 1.5 Microgram per kilogram, qw
     Route: 058
     Dates: start: 20120604, end: 20120807
  2. REBETOL [Suspect]
     Indication: HEPATITIS C
     Dosage: Dose: 1000 mg, cumulative dose: 1000 mg
     Route: 048
     Dates: start: 20120604, end: 20120618
  3. REBETOL [Suspect]
     Dosage: Cumulative dose: 1000 mg
     Route: 048
     Dates: start: 20120619, end: 20120709
  4. REBETOL [Suspect]
     Dosage: Cumulative dose: 1000 mg
     Route: 048
     Dates: start: 20120710, end: 20120717
  5. REBETOL [Suspect]
     Dosage: cumulative dose: 1000 mg
     Route: 048
     Dates: start: 20120718, end: 20120723
  6. REBETOL [Suspect]
     Dosage: Cumulative dose: 1000 mg
     Route: 048
     Dates: start: 20120724, end: 20120807
  7. TELAVIC [Suspect]
     Indication: HEPATITIS C
     Dosage: Dose: 2250 mg, cumulative dose: 2250 mg
     Route: 048
     Dates: start: 20120604, end: 20120730
  8. TELAVIC [Suspect]
     Dosage: Dose: 1500 mg, cumulative dose: 2250 mg
     Route: 048
     Dates: start: 20120731, end: 20120807
  9. ALLEGRA [Concomitant]
     Indication: ECZEMA
     Dosage: Formulation: por
     Route: 048
     Dates: end: 20120827
  10. PURSENNID (SENNOSIDES) [Concomitant]
     Indication: CONSTIPATION
     Dosage: Dose: 12 mg/day as needed, formulation: por
     Route: 048
     Dates: end: 20120827
  11. NORVASC [Concomitant]
     Indication: HYPERTENSION
     Dosage: Formulation: por
     Route: 048
     Dates: end: 20120827
  12. RHYTHMY [Concomitant]
     Indication: INSOMNIA
     Dosage: Dose: 1 mg/day as needed, formulation: por
     Route: 048
     Dates: start: 20120606, end: 20120621

REACTIONS (1)
  - Anaemia [Recovering/Resolving]
